FAERS Safety Report 14459851 (Version 1)
Quarter: 2018Q1

REPORT INFORMATION
  Report Type: Other
  Country: US (occurrence: US)
  Receive Date: 20180130
  Receipt Date: 20180130
  Transmission Date: 20180509
  Serious: No
  Sender: FDA-Public Use
  Company Number: US-ACORDA-ACO_139854_2017

PATIENT
  Sex: Female

DRUGS (1)
  1. AMPYRA [Suspect]
     Active Substance: DALFAMPRIDINE
     Indication: PRODUCT USED FOR UNKNOWN INDICATION
     Dosage: 10 MG, Q 12 HRS
     Route: 048
     Dates: start: 20170615, end: 20170615

REACTIONS (6)
  - Oral mucosal blistering [Unknown]
  - Swelling [Unknown]
  - Dizziness [Unknown]
  - Lip swelling [Unknown]
  - Malaise [Unknown]
  - Hypersensitivity [Unknown]
